FAERS Safety Report 4714541-0 (Version None)
Quarter: 2005Q3

REPORT INFORMATION
  Report Type: 
  Country: None (occurrence: None)
  Receive Date: 20050714
  Receipt Date: 20050711
  Transmission Date: 20060218
  Serious: Yes (Hospitalization)
  Sender: FDA-Public Use
  Company Number: ES-MERCK-0507ESP00013

PATIENT
  Age: 84 Year
  Sex: Male

DRUGS (4)
  1. COZAAR [Suspect]
     Route: 048
     Dates: start: 20040101, end: 20040704
  2. POTASSIUM BICARBONATE [Suspect]
     Route: 048
     Dates: start: 20040101, end: 20040704
  3. ASCORBIC ACID [Suspect]
     Route: 048
     Dates: start: 20040101, end: 20040704
  4. DIGOXIN [Suspect]
     Route: 048
     Dates: start: 20040101, end: 20040704

REACTIONS (4)
  - DRUG INTERACTION [None]
  - DRUG LEVEL INCREASED [None]
  - HYPERKALAEMIA [None]
  - RENAL FAILURE ACUTE [None]
